FAERS Safety Report 20908798 (Version 3)
Quarter: 2022Q2

REPORT INFORMATION
  Report Type: Spontaneous
  Country: US (occurrence: None)
  Receive Date: 20220603
  Receipt Date: 20220611
  Transmission Date: 20220720
  Serious: Yes (Other)
  Sender: FDA-Public Use
  Company Number: US-ROCHE-3107366

PATIENT
  Sex: Male

DRUGS (2)
  1. ESBRIET [Suspect]
     Active Substance: PIRFENIDONE
     Indication: Idiopathic pulmonary fibrosis
     Route: 048
     Dates: start: 20220408
  2. MANGANESE [Concomitant]
     Active Substance: MANGANESE CHLORIDE
     Dosage: 0.1 MG/ML

REACTIONS (3)
  - Thyroid cancer [Unknown]
  - Diarrhoea [Unknown]
  - Fatigue [Unknown]
